FAERS Safety Report 16042726 (Version 4)
Quarter: 2021Q3

REPORT INFORMATION
  Report Type: Report from Study
  Country: US (occurrence: US)
  Receive Date: 20190306
  Receipt Date: 20210726
  Transmission Date: 20211014
  Serious: Yes (Other)
  Sender: FDA-Public Use
  Company Number: US-JAZZ-2018-US-016354

PATIENT
  Sex: Female

DRUGS (24)
  1. XYREM [Suspect]
     Active Substance: SODIUM OXYBATE
     Indication: NARCOLEPSY
     Dosage: 2.25 G, BID
     Route: 048
     Dates: start: 200606, end: 200609
  2. BIOTIN [Concomitant]
     Active Substance: BIOTIN
  3. RALOXIFENE HCL [Concomitant]
     Active Substance: RALOXIFENE
  4. SIMVASTATIN. [Concomitant]
     Active Substance: SIMVASTATIN
  5. CYTOMEL [Concomitant]
     Active Substance: LIOTHYRONINE SODIUM
  6. LEVOTHYROXINE. [Concomitant]
     Active Substance: LEVOTHYROXINE
  7. CLONAZEPAM. [Concomitant]
     Active Substance: CLONAZEPAM
  8. PIROXICAM. [Concomitant]
     Active Substance: PIROXICAM
  9. PROLIA [Concomitant]
     Active Substance: DENOSUMAB
  10. HYDROCHLOROTHIAZIDE. [Concomitant]
     Active Substance: HYDROCHLOROTHIAZIDE
  11. VITAMIN B12 [Concomitant]
     Active Substance: CYANOCOBALAMIN
  12. XYREM [Suspect]
     Active Substance: SODIUM OXYBATE
     Dosage: DOSE ADJUSTMENT
     Route: 048
     Dates: start: 200609, end: 201611
  13. TYLENOL WITH CODEINE [Concomitant]
     Active Substance: ACETAMINOPHEN\CODEINE PHOSPHATE
  14. CITALOPRAM [Concomitant]
     Active Substance: CITALOPRAM HYDROBROMIDE
  15. FLUOCINONIDE. [Concomitant]
     Active Substance: FLUOCINONIDE
  16. FLUOCINOLONE [Concomitant]
     Active Substance: FLUOCINOLONE
  17. ASPIRIN 81 [Concomitant]
     Active Substance: ASPIRIN
  18. AMOXICILLIN. [Concomitant]
     Active Substance: AMOXICILLIN
  19. LORAZEPAM. [Concomitant]
     Active Substance: LORAZEPAM
  20. XYREM [Suspect]
     Active Substance: SODIUM OXYBATE
     Dosage: 5 G, BID
     Route: 048
     Dates: start: 201611
  21. PHOSPHATIDYL CHOLINE [Concomitant]
     Active Substance: LECITHIN
  22. NUVIGIL [Concomitant]
     Active Substance: ARMODAFINIL
  23. BONIVA [Concomitant]
     Active Substance: IBANDRONATE SODIUM
  24. VITAMIN D3 [Concomitant]
     Active Substance: CHOLECALCIFEROL

REACTIONS (1)
  - Periarthritis [Not Recovered/Not Resolved]
